FAERS Safety Report 4385557-1 (Version None)
Quarter: 2004Q2

REPORT INFORMATION
  Report Type: 
  Country: None (occurrence: None)
  Receive Date: 20040628
  Receipt Date: 20040628
  Transmission Date: 20050107
  Serious: Yes (Other)
  Sender: FDA-Public Use
  Company Number: None

PATIENT
  Age: 69 Year
  Sex: Female
  Weight: 70.3075 kg

DRUGS (4)
  1. CRESTOR [Suspect]
     Indication: BLOOD CHOLESTEROL INCREASED
     Dosage: 10 MGM DAILY ORAL
     Route: 048
     Dates: start: 20040501, end: 20040607
  2. CRESTOR [Suspect]
     Indication: BLOOD TRIGLYCERIDES INCREASED
     Dosage: 10 MGM DAILY ORAL
     Route: 048
     Dates: start: 20040501, end: 20040607
  3. COZAAR [Concomitant]
  4. CELEBREX [Concomitant]

REACTIONS (3)
  - ASTHENIA [None]
  - LACRIMATION INCREASED [None]
  - SENSORY DISTURBANCE [None]
